FAERS Safety Report 13302246 (Version 1)
Quarter: 2017Q1

REPORT INFORMATION
  Report Type: Report from Study
  Country: US (occurrence: US)
  Receive Date: 20170307
  Receipt Date: 20170307
  Transmission Date: 20170428
  Serious: Yes (Other)
  Sender: FDA-Public Use
  Company Number: US-MYLANLABS-2017M1012592

PATIENT

DRUGS (1)
  1. DOXORUBICIN [Suspect]
     Active Substance: DOXORUBICIN
     Indication: BREAST CANCER METASTATIC
     Dosage: IN A LOBAR FASHION USING 37.5MG DOXORUBICIN/ML OF 70-150MICROM LCBEADS FOR TOTAL LOBAR DOSE OF 150MG
     Route: 065

REACTIONS (2)
  - Hyperbilirubinaemia [Unknown]
  - Hepatobiliary disease [Unknown]
